FAERS Safety Report 7673562-9 (Version None)
Quarter: 2011Q3

REPORT INFORMATION
  Report Type: 
  Country: None (occurrence: None)
  Receive Date: 20110804
  Receipt Date: 20110606
  Transmission Date: 20111222
  Serious: Yes (Other)
  Sender: FDA-Public Use
  Company Number: E2B_00000069

PATIENT
  Sex: Female
  Weight: 59 kg

DRUGS (2)
  1. FOLIC ACID (FOLVERLAN) [Concomitant]
  2. SERTRALINE HYDROCHLORIDE [Suspect]
     Indication: DEPRESSION
     Dosage: 50 [MG/D] (50 MG, 1 IN 1 D), ORAL
     Route: 048

REACTIONS (3)
  - ABORTION MISSED [None]
  - PREGNANCY [None]
  - MATERNAL EXPOSURE DURING PREGNANCY [None]
